FAERS Safety Report 23225932 (Version 1)
Quarter: 2023Q4

REPORT INFORMATION
  Report Type: Spontaneous
  Country: US (occurrence: US)
  Receive Date: 20231124
  Receipt Date: 20231124
  Transmission Date: 20240110
  Serious: Yes (Other)
  Sender: FDA-Public Use
  Company Number: US-SA-SAC20230526000302

PATIENT

DRUGS (1)
  1. HYDROXYCHLOROQUINE [Suspect]
     Active Substance: HYDROXYCHLOROQUINE
     Dosage: UNK
     Route: 065

REACTIONS (11)
  - Papillary thyroid cancer [Unknown]
  - Systemic lupus erythematosus [Unknown]
  - Arthritis [Unknown]
  - Dry mouth [Unknown]
  - Oral discomfort [Not Recovered/Not Resolved]
  - Constipation [Unknown]
  - Gastrointestinal pain [Unknown]
  - Liver disorder [Unknown]
  - Tongue discomfort [Not Recovered/Not Resolved]
  - Fatigue [Not Recovered/Not Resolved]
  - Dizziness [Unknown]
